FAERS Safety Report 6612782-9 (Version None)
Quarter: 2010Q1

REPORT INFORMATION
  Report Type: 
  Country: None (occurrence: None)
  Receive Date: 20100303
  Receipt Date: 20100225
  Transmission Date: 20100710
  Serious: Yes (Other)
  Sender: FDA-Public Use
  Company Number: US-TYCO HEALTHCARE/MALLINCKRODT-T201000685

PATIENT
  Sex: Male

DRUGS (2)
  1. OPTIRAY 350 [Suspect]
     Indication: UROGRAM
     Dosage: 50 ML, SINGLE
     Route: 042
     Dates: start: 20100225, end: 20100225
  2. TYLENOL (CAPLET) [Concomitant]
     Dosage: UNK

REACTIONS (5)
  - CHEST DISCOMFORT [None]
  - DYSPNOEA [None]
  - ERYTHEMA [None]
  - NAUSEA [None]
  - THROAT TIGHTNESS [None]
